FAERS Safety Report 9286791 (Version 1)
Quarter: 2013Q2

REPORT INFORMATION
  Report Type: Spontaneous
  Country: AU (occurrence: None)
  Receive Date: 20130508
  Receipt Date: 20130508
  Transmission Date: 20140414
  Serious: Yes (Life-Threatening)
  Sender: FDA-Public Use
  Company Number: 1695323

PATIENT
  Age: 3 Month
  Sex: Male

DRUGS (2)
  1. BLEOMYCIN SULFATE [Suspect]
     Indication: NECK MASS
     Dosage: 3-10 IU PER SESSION
  2. ETHANOL [Concomitant]

REACTIONS (2)
  - Pneumonitis [None]
  - Respiratory failure [None]
